FAERS Safety Report 10567452 (Version 1)
Quarter: 2014Q4

REPORT INFORMATION
  Report Type: Spontaneous
  Country: GB (occurrence: GB)
  Receive Date: 20141106
  Receipt Date: 20141106
  Transmission Date: 20150529
  Serious: Yes (Other)
  Sender: FDA-Public Use
  Company Number: GB-MICRO LABS LIMITED-BB2014-00913

PATIENT
  Age: 69 Year
  Sex: Male

DRUGS (1)
  1. SIMVASTATIN. [Suspect]
     Active Substance: SIMVASTATIN
     Indication: BLOOD CHOLESTEROL INCREASED
     Dosage: UNK
     Route: 048

REACTIONS (11)
  - Tenderness [Unknown]
  - Partner stress [Unknown]
  - Myalgia [Unknown]
  - Balance disorder [Unknown]
  - Rash [Unknown]
  - Muscle spasms [Unknown]
  - Irritability [Unknown]
  - Asthenia [Unknown]
  - Quality of life decreased [Unknown]
  - Psychiatric symptom [Unknown]
  - Myocardial infarction [Unknown]
